FAERS Safety Report 6182680-6 (Version None)
Quarter: 2009Q2

REPORT INFORMATION
  Report Type: 
  Country: None (occurrence: None)
  Receive Date: 20090507
  Receipt Date: 20090429
  Transmission Date: 20091009
  Serious: Yes (Death, Hospitalization, Other)
  Sender: FDA-Public Use
  Company Number: A0782806A

PATIENT
  Sex: Male
  Weight: 54 kg

DRUGS (1)
  1. SERETIDE [Suspect]
     Indication: FATIGUE
     Dosage: 1PUFF TWICE PER DAY
     Route: 055

REACTIONS (3)
  - CHRONIC OBSTRUCTIVE PULMONARY DISEASE [None]
  - MULTI-ORGAN FAILURE [None]
  - OEDEMA [None]
